FAERS Safety Report 12362603 (Version 1)
Quarter: 2016Q2

REPORT INFORMATION
  Report Type: Spontaneous
  Country: US (occurrence: US)
  Receive Date: 20160512
  Receipt Date: 20160512
  Transmission Date: 20160815
  Serious: No
  Sender: FDA-Public Use
  Company Number: US-UCBSA-2015007149

PATIENT
  Age: 62 Year
  Sex: Male

DRUGS (2)
  1. CIMZIA [Suspect]
     Active Substance: CERTOLIZUMAB PEGOL
     Indication: OFF LABEL USE
  2. CIMZIA [Suspect]
     Active Substance: CERTOLIZUMAB PEGOL
     Indication: PSORIASIS
     Dosage: 400 MG, EV 4 WEEKS
     Route: 058
     Dates: start: 20140508, end: 20141225

REACTIONS (2)
  - Off label use [Unknown]
  - Myalgia [Unknown]

NARRATIVE: CASE EVENT DATE: 2014
